FAERS Safety Report 11871082 (Version 1)
Quarter: 2015Q4

REPORT INFORMATION
  Report Type: Spontaneous
  Country: US (occurrence: None)
  Receive Date: 20151224
  Receipt Date: 20151224
  Transmission Date: 20160305
  Serious: No
  Sender: FDA-Public Use
  Company Number: None

PATIENT
  Age: 61 Year
  Sex: Female

DRUGS (3)
  1. IRON SUCROSE [Suspect]
     Active Substance: IRON SUCROSE
     Indication: IRON DEFICIENCY
     Route: 042
     Dates: start: 20151021, end: 20151021
  2. IRON SUCROSE [Suspect]
     Active Substance: IRON SUCROSE
     Indication: CARDIAC FAILURE CONGESTIVE
     Route: 042
     Dates: start: 20151021, end: 20151021
  3. IRON SUCROSE [Suspect]
     Active Substance: IRON SUCROSE
     Indication: ANAEMIA
     Route: 042
     Dates: start: 20151021, end: 20151021

REACTIONS (5)
  - Dyspnoea [None]
  - Hypotension [None]
  - Seizure [None]
  - Stupor [None]
  - Syncope [None]

NARRATIVE: CASE EVENT DATE: 20151021
